FAERS Safety Report 6440517-1 (Version None)
Quarter: 2009Q4

REPORT INFORMATION
  Report Type: 
  Country: None (occurrence: None)
  Receive Date: 20091113
  Receipt Date: 20091109
  Transmission Date: 20100525
  Serious: Yes (Life-Threatening, Other)
  Sender: FDA-Public Use
  Company Number: JP-ABBOTT-09P-087-0601889-00

PATIENT
  Sex: Male

DRUGS (10)
  1. VASOLAN [Suspect]
     Indication: DRUG USE FOR UNKNOWN INDICATION
     Route: 048
     Dates: end: 20090917
  2. TASMOLIN [Suspect]
     Indication: DRUG USE FOR UNKNOWN INDICATION
     Route: 048
     Dates: end: 20090917
  3. ABILIFY [Suspect]
     Indication: SCHIZOPHRENIA
     Route: 048
     Dates: start: 20090819
  4. RISPERDAL [Suspect]
     Indication: SCHIZOPHRENIA
     Route: 048
     Dates: end: 20090917
  5. BLONANSERIN [Suspect]
     Indication: DRUG USE FOR UNKNOWN INDICATION
     Route: 048
     Dates: start: 20090316
  6. BLONANSERIN [Suspect]
     Dosage: 8MG DAILY
     Dates: start: 20090924
  7. CHLORPROMAZINE [Suspect]
     Indication: DRUG USE FOR UNKNOWN INDICATION
     Route: 048
     Dates: start: 20090304, end: 20090917
  8. MAGNESIUM OXIDE [Suspect]
     Indication: DRUG USE FOR UNKNOWN INDICATION
     Route: 048
     Dates: end: 20090917
  9. GLUCOBAY [Suspect]
     Indication: DRUG USE FOR UNKNOWN INDICATION
     Route: 048
     Dates: start: 20090512
  10. SODIUM PICOSULFATE [Suspect]
     Indication: DRUG USE FOR UNKNOWN INDICATION
     Route: 048
     Dates: end: 20090917

REACTIONS (3)
  - INTESTINAL OBSTRUCTION [None]
  - PSYCHIATRIC SYMPTOM [None]
  - URINARY RETENTION [None]
